FAERS Safety Report 25276431 (Version 2)
Quarter: 2025Q4

REPORT INFORMATION
  Report Type: Spontaneous
  Country: US (occurrence: US)
  Receive Date: 20250507
  Receipt Date: 20251125
  Transmission Date: 20260118
  Serious: No
  Sender: OTSUKA
  Company Number: US-OTSUKA-2025_000538

PATIENT
  Age: 33 Year
  Sex: Female
  Weight: 98.41 kg

DRUGS (1)
  1. ARIPIPRAZOLE [Suspect]
     Active Substance: ARIPIPRAZOLE
     Indication: Bipolar disorder
     Dosage: 960 MG 2 MONTHLY (ARI 2M-RTU 960)
     Route: 065
     Dates: start: 20241126, end: 20250106

REACTIONS (1)
  - Maternal exposure during pregnancy [Unknown]

NARRATIVE: CASE EVENT DATE: 20241224
